FAERS Safety Report 10387203 (Version 1)
Quarter: 2014Q3

REPORT INFORMATION
  Report Type: Spontaneous
  Country: US (occurrence: None)
  Receive Date: 20140814
  Receipt Date: 20140814
  Transmission Date: 20150326
  Serious: Yes (Other)
  Sender: FDA-Public Use
  Company Number: None

PATIENT
  Age: 76 Year
  Sex: Male
  Weight: 77.11 kg

DRUGS (4)
  1. CEPHALEXIN. [Suspect]
     Active Substance: CEPHALEXIN
     Indication: LOCALISED INFECTION
     Dosage: 4 PILLS A DAY  MOUTH
     Route: 048
     Dates: start: 20140722, end: 20140726
  2. LISINOPRIL. [Concomitant]
     Active Substance: LISINOPRIL
  3. VERAPAMIL [Concomitant]
     Active Substance: VERAPAMIL HYDROCHLORIDE
  4. METFORM [Concomitant]

REACTIONS (4)
  - Cystitis [None]
  - Pruritus [None]
  - Dysuria [None]
  - Rash [None]

NARRATIVE: CASE EVENT DATE: 20140724
